FAERS Safety Report 4557284-9 (Version None)
Quarter: 2005Q1

REPORT INFORMATION
  Report Type: 
  Country: None (occurrence: None)
  Receive Date: 20050118
  Receipt Date: 20050105
  Transmission Date: 20050727
  Serious: Yes (Other)
  Sender: FDA-Public Use
  Company Number: 2005005277

PATIENT
  Age: 67 Year
  Sex: Female

DRUGS (7)
  1. CABERGOLINE [Suspect]
     Indication: PARKINSON'S DISEASE
     Dosage: (4 MG, ORAL)
     Route: 048
     Dates: start: 20041001, end: 20041101
  2. PERGOLIDE (PERGOLIDE) [Suspect]
     Indication: PARKINSON'S DISEASE
     Dosage: 4.5 MG (1.5 MG, 1 IN 3 D), ORAL
     Route: 048
     Dates: start: 20000101, end: 20040401
  3. AMITRIPTYLINE HCL [Concomitant]
  4. CODEINE PHOSPHATE (CODEINE PHOSPHATE) [Concomitant]
  5. IBUPROFEN [Concomitant]
  6. APOREX (DEXTROPROPOXYPHENE HYDROCHLORIDE, PARACETAMOL) [Concomitant]
  7. ROPINIROLE (ROPINIROLE) [Concomitant]

REACTIONS (1)
  - CONJUNCTIVITIS [None]
